FAERS Safety Report 9224193 (Version 1)
Quarter: 2013Q2

REPORT INFORMATION
  Report Type: Spontaneous
  Country: US (occurrence: US)
  Receive Date: 20130411
  Receipt Date: 20130411
  Transmission Date: 20140414
  Serious: No
  Sender: FDA-Public Use
  Company Number: US-PFIZER INC-2013110466

PATIENT
  Age: 65 Year
  Sex: Male

DRUGS (2)
  1. XALKORI [Suspect]
     Indication: PROSTATE CANCER
     Dosage: 160 MG DAILY
     Route: 048
     Dates: start: 20130312
  2. XTANDI [Suspect]
     Dosage: UNK

REACTIONS (1)
  - Musculoskeletal pain [Unknown]
